FAERS Safety Report 6789674-8 (Version None)
Quarter: 2010Q2

REPORT INFORMATION
  Report Type: 
  Country: None (occurrence: None)
  Receive Date: 20100624
  Receipt Date: 20071220
  Transmission Date: 20101027
  Serious: No
  Sender: FDA-Public Use
  Company Number: 2007BI027119

PATIENT
  Sex: Male

DRUGS (1)
  1. TYSABRI [Suspect]
     Indication: MULTIPLE SCLEROSIS
     Route: 042
     Dates: start: 20071219

REACTIONS (10)
  - ANXIETY [None]
  - BALANCE DISORDER [None]
  - BODY TEMPERATURE INCREASED [None]
  - FATIGUE [None]
  - HYPOAESTHESIA [None]
  - INFLUENZA LIKE ILLNESS [None]
  - MUSCLE CONTRACTIONS INVOLUNTARY [None]
  - SEBORRHOEIC DERMATITIS [None]
  - SPEECH DISORDER [None]
  - STRESS [None]
